FAERS Safety Report 10542495 (Version 2)
Quarter: 2014Q4

REPORT INFORMATION
  Report Type: Spontaneous
  Country: RO (occurrence: RO)
  Receive Date: 20141027
  Receipt Date: 20141201
  Transmission Date: 20150529
  Serious: Yes (Death)
  Sender: FDA-Public Use
  Company Number: RO-ROCHE-1479780

PATIENT
  Sex: Female
  Weight: 50 kg

DRUGS (2)
  1. MABTHERA [Suspect]
     Active Substance: RITUXIMAB
     Indication: RHEUMATOID ARTHRITIS
     Dosage: DOSE: 500 X 2 MG
     Route: 042
     Dates: start: 20130501, end: 20131031
  2. METHOTREXATE [Concomitant]
     Active Substance: METHOTREXATE
     Indication: RHEUMATOID ARTHRITIS
     Route: 058
     Dates: start: 2007, end: 2013

REACTIONS (3)
  - Hypertension [Not Recovered/Not Resolved]
  - Renal failure [Fatal]
  - Type 2 diabetes mellitus [Not Recovered/Not Resolved]
